FAERS Safety Report 5359108-9 (Version None)
Quarter: 2007Q2

REPORT INFORMATION
  Report Type: 
  Country: None (occurrence: None)
  Receive Date: 20070601
  Receipt Date: 20070320
  Transmission Date: 20071010
  Serious: No
  Sender: FDA-Public Use
  Company Number: PHEH2007US03306

PATIENT
  Age: 80 Year
  Sex: Male

DRUGS (1)
  1. ENABLEX [Suspect]
     Indication: HYPERTONIC BLADDER
     Dates: end: 20070320

REACTIONS (2)
  - ABDOMINAL PAIN [None]
  - DIARRHOEA [None]
